FAERS Safety Report 7926785-5 (Version None)
Quarter: 2011Q4

REPORT INFORMATION
  Report Type: 
  Country: None (occurrence: None)
  Receive Date: 20111118
  Receipt Date: 20111107
  Transmission Date: 20120403
  Serious: Yes (Hospitalization, Other)
  Sender: FDA-Public Use
  Company Number: US-BAYER-2011-081865

PATIENT
  Age: 34 Year
  Sex: Female
  Weight: 81.633 kg

DRUGS (13)
  1. ACETAMINOPHEN [Concomitant]
     Indication: MIGRAINE
  2. VERAPAMIL [Concomitant]
  3. ACETAMINOPHEN [Concomitant]
     Indication: PAIN
  4. PROZAC [Concomitant]
  5. METHADONE HCL [Concomitant]
  6. YASMIN [Suspect]
     Indication: CONTRACEPTION
     Dosage: UNK
     Dates: start: 20040910, end: 20080701
  7. METHADONE HCL [Concomitant]
  8. ZOLOFT [Concomitant]
  9. YASMIN [Suspect]
     Indication: MENSTRUATION IRREGULAR
  10. VERAPAMIL [Concomitant]
  11. PROZAC [Concomitant]
  12. 4-WAY NASAL [Concomitant]
     Indication: SINUS DISORDER
  13. COUMADIN [Concomitant]

REACTIONS (7)
  - GALLBLADDER DISORDER [None]
  - CHOLECYSTITIS CHRONIC [None]
  - INJURY [None]
  - HAEMORRHOIDS [None]
  - VENOUS INSUFFICIENCY [None]
  - PHLEBITIS SUPERFICIAL [None]
  - PAIN [None]
